FAERS Safety Report 9412205 (Version 1)
Quarter: 2013Q3

REPORT INFORMATION
  Report Type: Spontaneous
  Country: US (occurrence: None)
  Receive Date: 20130719
  Receipt Date: 20130719
  Transmission Date: 20140515
  Serious: Yes (Life-Threatening, Hospitalization, Other)
  Sender: FDA-Public Use
  Company Number: None

PATIENT
  Age: 61 Year
  Sex: Female
  Weight: 102.06 kg

DRUGS (1)
  1. LOSARTAN [Suspect]
     Indication: HYPERTENSION
     Dates: start: 20130318, end: 20130510

REACTIONS (6)
  - Vertigo [None]
  - Thrombophlebitis [None]
  - Phlebitis [None]
  - Abscess limb [None]
  - Unevaluable event [None]
  - Drug hypersensitivity [None]
